FAERS Safety Report 5873069-5 (Version None)
Quarter: 2008Q3

REPORT INFORMATION
  Report Type: 
  Country: None (occurrence: None)
  Receive Date: 20080903
  Receipt Date: 20080819
  Transmission Date: 20090109
  Serious: Yes (Other)
  Sender: FDA-Public Use
  Company Number: 002#2#2008-00337

PATIENT
  Age: 67 Year
  Sex: Female
  Weight: 53.5244 kg

DRUGS (15)
  1. NEUPRO [Suspect]
     Indication: PARKINSON'S DISEASE
     Dosage: 6MG/24H, 1 IN 1 D, TRANSDERMAL
     Route: 062
     Dates: start: 20071001, end: 20080321
  2. MIRAPEX [Suspect]
     Indication: DRUG THERAPY CHANGED
     Dosage: .125MG, ORAL
     Route: 048
     Dates: start: 20080314, end: 20080319
  3. SINEMET [Concomitant]
  4. ZIAC [Concomitant]
  5. PLAVIX [Concomitant]
  6. PRILOSEC [Concomitant]
  7. LISINOPRIL [Concomitant]
  8. NORVASC [Concomitant]
  9. ZOLOFT [Concomitant]
  10. ASPIRIN [Concomitant]
  11. MULTI-VITAMIN [Concomitant]
  12. CALCIUM 600 WITH D [Concomitant]
  13. MSM [Concomitant]
  14. GLUCOSAMIDE [Concomitant]
  15. CHONDROITIN [Concomitant]

REACTIONS (5)
  - CEREBROVASCULAR ACCIDENT [None]
  - CONDITION AGGRAVATED [None]
  - DIZZINESS [None]
  - STOMACH DISCOMFORT [None]
  - TREMOR [None]
